FAERS Safety Report 4474346-5 (Version None)
Quarter: 2004Q4

REPORT INFORMATION
  Report Type: 
  Country: None (occurrence: None)
  Receive Date: 20041014
  Receipt Date: 20041007
  Transmission Date: 20050328
  Serious: Yes (Hospitalization)
  Sender: FDA-Public Use
  Company Number: PHNU2004DE03453

PATIENT
  Sex: Male

DRUGS (6)
  1. LOCOL [Suspect]
  2. ACETYLSALICYLIC ACID [Concomitant]
  3. DILATREND [Concomitant]
  4. ATACAND [Concomitant]
  5. HUMALOG [Concomitant]
  6. LANTUS [Concomitant]

REACTIONS (2)
  - BLOOD CREATINE PHOSPHOKINASE INCREASED [None]
  - CORONARY ARTERY DISEASE [None]
